FAERS Safety Report 19361563 (Version 2)
Quarter: 2021Q2

REPORT INFORMATION
  Report Type: Spontaneous
  Country: FI (occurrence: FI)
  Receive Date: 20210601
  Receipt Date: 20210616
  Transmission Date: 20210717
  Serious: Yes (Life-Threatening, Hospitalization, Other)
  Sender: FDA-Public Use
  Company Number: FI-ROCHE-2839693

PATIENT
  Age: 85 Year
  Sex: Female
  Weight: 72.8 kg

DRUGS (6)
  1. CORTISONE [Suspect]
     Active Substance: CORTISONE
     Indication: PRODUCT USED FOR UNKNOWN INDICATION
     Route: 065
  2. ROACTEMRA [Suspect]
     Active Substance: TOCILIZUMAB
     Route: 042
     Dates: start: 20210316
  3. PREDNISOLON [Concomitant]
     Active Substance: PREDNISOLONE
  4. ROACTEMRA [Suspect]
     Active Substance: TOCILIZUMAB
     Indication: GIANT CELL ARTERITIS
     Dosage: 600 TOTAL MONTHLY DOSE
     Route: 042
     Dates: start: 20201216
  5. ROACTEMRA [Suspect]
     Active Substance: TOCILIZUMAB
     Route: 042
     Dates: start: 20210215
  6. ROACTEMRA [Suspect]
     Active Substance: TOCILIZUMAB
     Route: 042
     Dates: start: 20210118

REACTIONS (5)
  - Limb discomfort [Unknown]
  - Hypokinesia [Unknown]
  - Brain abscess [Recovered/Resolved with Sequelae]
  - Listeriosis [Unknown]
  - Meningitis listeria [Unknown]

NARRATIVE: CASE EVENT DATE: 20210404
